FAERS Safety Report 7137924-0 (Version None)
Quarter: 2010Q4

REPORT INFORMATION
  Report Type: 
  Country: None (occurrence: None)
  Receive Date: 20101103
  Receipt Date: 20100505
  Transmission Date: 20110411
  Serious: Yes (Other)
  Sender: FDA-Public Use
  Company Number: 2010S1001339

PATIENT
  Age: 59 Year
  Sex: Male
  Weight: 73 kg

DRUGS (4)
  1. CUBICIN [Suspect]
     Indication: DEVICE RELATED INFECTION
     Dosage: 10 MG/KG; Q48H; IV
     Route: 042
     Dates: end: 20080101
  2. LINEZOLID [Concomitant]
  3. IMIPENEM [Concomitant]
  4. DOXYCYCLINE [Concomitant]

REACTIONS (2)
  - NEUROPATHY PERIPHERAL [None]
  - RENAL FAILURE CHRONIC [None]
